APPROVED DRUG PRODUCT: CYANOKIT
Active Ingredient: HYDROXOCOBALAMIN
Strength: 2.5GM/VIAL (5GM/KIT)
Dosage Form/Route: INJECTABLE;INJECTION
Application: N022041 | Product #002
Applicant: BTG INTERNATIONAL INC
Approved: Dec 15, 2006 | RLD: No | RS: No | Type: DISCN